FAERS Safety Report 18915794 (Version 3)
Quarter: 2022Q1

REPORT INFORMATION
  Report Type: Spontaneous
  Country: US (occurrence: US)
  Receive Date: 20210219
  Receipt Date: 20220120
  Transmission Date: 20220423
  Serious: Yes (Hospitalization)
  Sender: FDA-Public Use
  Company Number: US-CELGENE-USA-20210203732

PATIENT
  Age: 29 Year
  Sex: Female

DRUGS (6)
  1. THALOMID [Suspect]
     Active Substance: THALIDOMIDE
     Indication: Erythema multiforme
     Dosage: 200 MILLIGRAM
     Route: 048
     Dates: start: 201209
  2. THALOMID [Suspect]
     Active Substance: THALIDOMIDE
     Indication: Off label use
     Dosage: 100-50 MG
     Route: 048
     Dates: start: 201301
  3. THALOMID [Suspect]
     Active Substance: THALIDOMIDE
     Dosage: 100 MILLIGRAM
     Route: 048
     Dates: start: 201503
  4. THALOMID [Suspect]
     Active Substance: THALIDOMIDE
     Dosage: 100-50 MG
     Route: 048
     Dates: start: 201509
  5. THALOMID [Suspect]
     Active Substance: THALIDOMIDE
     Dosage: 100-200 MG
     Route: 048
     Dates: start: 201512
  6. THALOMID [Suspect]
     Active Substance: THALIDOMIDE
     Dosage: 200 MILLIGRAM
     Route: 048
     Dates: start: 20161029

REACTIONS (3)
  - Infertility [Not Recovered/Not Resolved]
  - Menstruation irregular [Unknown]
  - Tremor [Unknown]

NARRATIVE: CASE EVENT DATE: 20210101
